FAERS Safety Report 6773121-6 (Version None)
Quarter: 2010Q2

REPORT INFORMATION
  Report Type: 
  Country: None (occurrence: None)
  Receive Date: 20100616
  Receipt Date: 20100604
  Transmission Date: 20101027
  Serious: Yes (Death, Hospitalization, Other)
  Sender: FDA-Public Use
  Company Number: US-ELI_LILLY_AND_COMPANY-US201003008262

PATIENT
  Sex: Female
  Weight: 62.585 kg

DRUGS (10)
  1. FORTEO [Suspect]
     Indication: OSTEOPENIA
     Dosage: 20 UG, DAILY (1/D)
     Dates: start: 20090301, end: 20100301
  2. XANAX [Concomitant]
  3. LEXAPRO [Concomitant]
  4. CLARINEX [Concomitant]
  5. ANALGESICS [Concomitant]
  6. FLEXERIL [Concomitant]
  7. PREVACID [Concomitant]
  8. SINGULAIR [Concomitant]
  9. VITAMINS WITH MINERALS [Concomitant]
  10. OXYGEN [Concomitant]
     Dosage: 3 LITERS

REACTIONS (3)
  - ASTHENIA [None]
  - CHRONIC OBSTRUCTIVE PULMONARY DISEASE [None]
  - LUNG DISORDER [None]
